FAERS Safety Report 20797808 (Version 1)
Quarter: 2022Q2

REPORT INFORMATION
  Report Type: Spontaneous
  Country: US (occurrence: None)
  Receive Date: 20220506
  Receipt Date: 20220506
  Transmission Date: 20220721
  Serious: No
  Sender: FDA-Public Use
  Company Number: None

PATIENT
  Age: 29 Year
  Sex: Male
  Weight: 66.22 kg

DRUGS (1)
  1. COSENTYX [Suspect]
     Active Substance: SECUKINUMAB
     Dosage: OTHER FREQUENCY : D28 DOS 5 THEN Q4W;?INJECT 150MG (1 SYRINGE) SUBCUTANEOUSLY AT DAY 28?(DOSE 5) THE
     Route: 058
     Dates: start: 202203

REACTIONS (1)
  - Rhabdomyolysis [None]
